FAERS Safety Report 9394999 (Version 1)
Quarter: 2013Q3

REPORT INFORMATION
  Report Type: Spontaneous
  Country: FR (occurrence: FR)
  Receive Date: 20130711
  Receipt Date: 20130711
  Transmission Date: 20140515
  Serious: Yes (Hospitalization, Other)
  Sender: FDA-Public Use
  Company Number: FR-PFIZER INC-2013198715

PATIENT
  Age: 55 Year
  Sex: Female

DRUGS (5)
  1. TAHOR [Suspect]
     Indication: DYSLIPIDAEMIA
     Dosage: 10 MG, DAILY
     Route: 048
  2. BETAHISTINE DIHYDROCHLORIDE [Suspect]
     Dosage: 2 DF, PER DAY
  3. ACUILIX [Suspect]
     Dosage: 1 DF, PER DAY
     Route: 048
  4. ZOVIRAX [Suspect]
     Indication: CONFUSIONAL STATE
     Dosage: UNK
     Dates: start: 20130331, end: 201304
  5. TIAPRIDAL [Suspect]
     Dosage: 1200 MG, DAILY
     Route: 048

REACTIONS (6)
  - Confusional state [Unknown]
  - Disorientation [Unknown]
  - Incoherent [Unknown]
  - Gait disturbance [Unknown]
  - Renal failure acute [Recovered/Resolved]
  - Blood creatinine increased [Recovered/Resolved]
